FAERS Safety Report 5077087-9 (Version None)
Quarter: 2006Q3

REPORT INFORMATION
  Report Type: 
  Country: None (occurrence: None)
  Receive Date: 20060810
  Receipt Date: 20050908
  Transmission Date: 20061208
  Serious: No
  Sender: FDA-Public Use
  Company Number: US-GLAXOSMITHKLINE-A0573486A

PATIENT
  Age: 11 Year
  Sex: Female

DRUGS (3)
  1. PAXIL [Suspect]
     Indication: SENSORY DISTURBANCE
     Dosage: 7.5MG PER DAY
     Route: 048
     Dates: end: 20050902
  2. PAXIL [Suspect]
     Dosage: 6.25MG PER DAY
     Route: 048
  3. NO CONCURRENT MEDICATION [Concomitant]

REACTIONS (4)
  - HEADACHE [None]
  - NAUSEA [None]
  - RETCHING [None]
  - VOMITING [None]
